FAERS Safety Report 18092977 (Version 1)
Quarter: 2020Q3

REPORT INFORMATION
  Report Type: Spontaneous
  Country: JP (occurrence: JP)
  Receive Date: 20200730
  Receipt Date: 20200730
  Transmission Date: 20201103
  Serious: Yes (Death, Life-Threatening, Hospitalization, Other)
  Sender: FDA-Public Use
  Company Number: JP-CELGENEUS-JPN-20200707242

PATIENT
  Age: 59 Year
  Sex: Male

DRUGS (2)
  1. RAMUCIRUMAB [Suspect]
     Active Substance: RAMUCIRUMAB
     Indication: GASTROINTESTINAL CANCER METASTATIC
     Dosage: 8 MILLIGRAM/KILOGRAM
     Route: 065
  2. ABRAXANE [Suspect]
     Active Substance: PACLITAXEL
     Indication: GASTROINTESTINAL CANCER METASTATIC
     Dosage: 100 MILLIGRAM/KILOGRAM
     Route: 041

REACTIONS (4)
  - Myocardial infarction [Fatal]
  - Hypertension [Unknown]
  - Shock [Fatal]
  - Aortic dissection [Fatal]
